FAERS Safety Report 24652019 (Version 1)
Quarter: 2024Q4

REPORT INFORMATION
  Report Type: Spontaneous
  Country: US (occurrence: None)
  Receive Date: 20241121
  Receipt Date: 20241121
  Transmission Date: 20250115
  Serious: Yes (Other)
  Sender: Public
  Company Number: None

PATIENT
  Age: 34 Year
  Sex: Female
  Weight: 75.75 kg

DRUGS (1)
  1. NEXPLANON [Suspect]
     Active Substance: ETONOGESTREL
     Indication: Contraception
     Route: 042
     Dates: start: 20240916, end: 20241024

REACTIONS (16)
  - Malaise [None]
  - Depression [None]
  - Menometrorrhagia [None]
  - Abdominal distension [None]
  - Breast pain [None]
  - Swelling face [None]
  - Acne [None]
  - Acne [None]
  - Weight increased [None]
  - Hunger [None]
  - Nightmare [None]
  - Mental disorder [None]
  - Intermenstrual bleeding [None]
  - Fatigue [None]
  - Mood swings [None]
  - Hyperhidrosis [None]

NARRATIVE: CASE EVENT DATE: 20240916
